FAERS Safety Report 7212032-9 (Version None)
Quarter: 2010Q4

REPORT INFORMATION
  Report Type: 
  Country: None (occurrence: None)
  Receive Date: 20101228
  Receipt Date: 20101223
  Transmission Date: 20110411
  Serious: Yes (Hospitalization, Other)
  Sender: FDA-Public Use
  Company Number: 20109296

PATIENT
  Age: 35 Year
  Sex: Female

DRUGS (1)
  1. LIORESAL [Suspect]
     Indication: MUSCLE SPASTICITY
     Dosage: SEE B5 MCG DAILY, INTRATHECAL
     Route: 037

REACTIONS (6)
  - DRUG EFFECT DECREASED [None]
  - FEELING ABNORMAL [None]
  - HEADACHE [None]
  - INTRACRANIAL HYPOTENSION [None]
  - MEDICAL DEVICE COMPLICATION [None]
  - MUSCULOSKELETAL STIFFNESS [None]
